FAERS Safety Report 9608556 (Version 1)
Quarter: 2013Q4

REPORT INFORMATION
  Report Type: Spontaneous
  Country: US (occurrence: US)
  Receive Date: 20131009
  Receipt Date: 20131009
  Transmission Date: 20140711
  Serious: Yes (Death)
  Sender: FDA-Public Use
  Company Number: US-PFIZER INC-2013287872

PATIENT
  Age: 83 Year
  Sex: Male

DRUGS (1)
  1. XALKORI [Suspect]
     Dosage: 250 MG, UNK

REACTIONS (1)
  - Death [Fatal]
